FAERS Safety Report 15693082 (Version 1)
Quarter: 2018Q4

REPORT INFORMATION
  Report Type: Spontaneous
  Country: GB (occurrence: GB)
  Receive Date: 20181206
  Receipt Date: 20181206
  Transmission Date: 20190205
  Serious: Yes (Disabling)
  Sender: FDA-Public Use
  Company Number: GB-TEVA-2018-GB-982420

PATIENT
  Age: 76 Year
  Sex: Male
  Weight: 90 kg

DRUGS (5)
  1. SIMVASTATIN. [Suspect]
     Active Substance: SIMVASTATIN
     Dates: start: 20181105
  2. SIMVASTATIN. [Concomitant]
     Active Substance: SIMVASTATIN
     Dosage: 1 DOSAGE FORMS DAILY; AT NIGHT
     Route: 065
     Dates: start: 20171129
  3. ACETYLSALICYLIC ACID [Concomitant]
     Active Substance: ASPIRIN
     Dosage: 1 DOSAGE FORMS DAILY; WITH OR AFTER FOOD
     Dates: start: 20171129
  4. BISOPROLOL [Concomitant]
     Active Substance: BISOPROLOL
     Dosage: 1 DOSAGE FORMS DAILY;
     Dates: start: 20171129
  5. RAMIPRIL. [Concomitant]
     Active Substance: RAMIPRIL
     Dosage: 1 DOSAGE FORMS DAILY;
     Dates: start: 20171129

REACTIONS (2)
  - Pain in extremity [Unknown]
  - Myalgia [Recovering/Resolving]

NARRATIVE: CASE EVENT DATE: 20181105
